FAERS Safety Report 12395149 (Version 2)
Quarter: 2016Q2

REPORT INFORMATION
  Report Type: Report from Study
  Country: PA (occurrence: PA)
  Receive Date: 20160523
  Receipt Date: 20160531
  Transmission Date: 20160815
  Serious: Yes (Congenital Anomaly, Other)
  Sender: FDA-Public Use
  Company Number: PA-EMD SERONO-8084793

PATIENT
  Age: 15 Year
  Sex: Male
  Weight: 36 kg

DRUGS (12)
  1. SAIZEN [Suspect]
     Active Substance: SOMATROPIN
     Indication: PRODUCT USED FOR UNKNOWN INDICATION
     Dosage: 2 (UNSPECIFIED UNITS)
     Dates: start: 201506
  2. LORATADINE. [Concomitant]
     Active Substance: LORATADINE
     Indication: ASTHMA
  3. SALBUTAMOL [Concomitant]
     Active Substance: ALBUTEROL
     Indication: ASTHMA
  4. SALBUTAMOL [Concomitant]
     Active Substance: ALBUTEROL
     Indication: RHINITIS
  5. BECLOMETASONE [Concomitant]
     Active Substance: BECLOMETHASONE DIPROPIONATE
     Indication: ASTHMA
  6. VITAMINS NOS [Concomitant]
     Active Substance: VITAMINS
     Indication: RHINITIS
  7. MONTELUKAST [Concomitant]
     Active Substance: MONTELUKAST SODIUM
     Indication: ASTHMA
  8. SAIZEN [Suspect]
     Active Substance: SOMATROPIN
  9. BECLOMETASONE [Concomitant]
     Active Substance: BECLOMETHASONE DIPROPIONATE
     Indication: RHINITIS
  10. VITAMINS NOS [Concomitant]
     Active Substance: VITAMINS
     Indication: ASTHMA
  11. LORATADINE. [Concomitant]
     Active Substance: LORATADINE
     Indication: RHINITIS
  12. MONTELUKAST [Concomitant]
     Active Substance: MONTELUKAST SODIUM
     Indication: RHINITIS

REACTIONS (3)
  - Pituitary cyst [Not Recovered/Not Resolved]
  - Therapeutic response decreased [Unknown]
  - Skeletal dysplasia [Unknown]

NARRATIVE: CASE EVENT DATE: 201511
